FAERS Safety Report 9317537 (Version 1)
Quarter: 2013Q2

REPORT INFORMATION
  Report Type: Spontaneous
  Country: US (occurrence: US)
  Receive Date: 20130530
  Receipt Date: 20130530
  Transmission Date: 20140414
  Serious: No
  Sender: FDA-Public Use
  Company Number: US-NOVEN-12US005254

PATIENT
  Sex: Female

DRUGS (4)
  1. DAYTRANA [Suspect]
     Indication: ATTENTION DEFICIT/HYPERACTIVITY DISORDER
     Dosage: 15 MG, QD
     Route: 062
  2. DAYTRANA [Suspect]
     Dosage: 10 MG, QD
  3. DAYTRANA [Suspect]
     Dosage: 20 MG, QD
  4. BUSPIRONE [Concomitant]
     Indication: PRODUCT USED FOR UNKNOWN INDICATION
     Dosage: UNK
     Route: 048

REACTIONS (5)
  - Abnormal behaviour [Not Recovered/Not Resolved]
  - Abdominal pain upper [Not Recovered/Not Resolved]
  - Mood swings [Not Recovered/Not Resolved]
  - Drug prescribing error [Recovered/Resolved]
  - Decreased appetite [Not Recovered/Not Resolved]
